FAERS Safety Report 8871117 (Version 1)
Quarter: 2012Q4

REPORT INFORMATION
  Report Type: 
  Country: AU (occurrence: AU)
  Receive Date: 20121029
  Receipt Date: 20121029
  Transmission Date: 20130627
  Serious: Yes (Hospitalization, Other)
  Sender: FDA-Public Use
  Company Number: PHHY2012AU087891

PATIENT
  Age: 28 Year
  Sex: Male

DRUGS (7)
  1. CLOZARIL [Suspect]
     Dosage: 400 mg
     Dates: start: 20040930
  2. INSULIN GLARGINE [Concomitant]
     Indication: DIABETES MELLITUS
     Dosage: 90 U, UNK
     Route: 058
  3. RANITIDINE [Concomitant]
     Indication: GASTROOESOPHAGEAL REFLUX DISEASE
     Dosage: 300 mg, UNK
     Route: 048
  4. VALPROIC ACID [Concomitant]
     Indication: AFFECTIVE DISORDER
     Dosage: 500 mg
     Route: 048
  5. METFORMIN [Concomitant]
     Indication: DIABETES MELLITUS
     Dosage: 1 g, TID
     Route: 048
  6. ATORVASTATIN [Concomitant]
     Indication: LIPIDS INCREASED
     Dosage: 40 mg, UNK
     Route: 048
  7. ASPIRIN [Concomitant]
     Dosage: 100 mg, UNK

REACTIONS (11)
  - Pericarditis [Recovered/Resolved]
  - Chest pain [Unknown]
  - Pyrexia [Unknown]
  - Dyspnoea [Unknown]
  - Chills [Unknown]
  - Productive cough [Unknown]
  - Influenza like illness [Unknown]
  - Respiratory failure [Unknown]
  - Cardiac tamponade [Unknown]
  - Skin infection [Unknown]
  - Eosinophil count increased [Recovered/Resolved]
